FAERS Safety Report 16954049 (Version 1)
Quarter: 2019Q4

REPORT INFORMATION
  Report Type: Spontaneous
  Country: CA (occurrence: CA)
  Receive Date: 20191023
  Receipt Date: 20191023
  Transmission Date: 20200122
  Serious: Yes (Other)
  Sender: FDA-Public Use
  Company Number: CA-PFIZER INC-2019454532

PATIENT
  Sex: Female

DRUGS (1)
  1. DIAZEPAM. [Suspect]
     Active Substance: DIAZEPAM
     Indication: PREOPERATIVE CARE
     Dosage: UNK
     Route: 065

REACTIONS (3)
  - Blood pressure increased [Unknown]
  - Hot flush [Unknown]
  - Nausea [Unknown]
